FAERS Safety Report 10950040 (Version 1)
Quarter: 2015Q1

REPORT INFORMATION
  Report Type: Spontaneous
  Country: US (occurrence: US)
  Receive Date: 20150324
  Receipt Date: 20150324
  Transmission Date: 20150721
  Serious: No
  Sender: FDA-Public Use
  Company Number: US-PFIZER INC-2015100173

PATIENT
  Age: 59 Year
  Sex: Male
  Weight: 82 kg

DRUGS (7)
  1. ATENOLOL. [Concomitant]
     Active Substance: ATENOLOL
     Indication: HYPERTENSION
     Dosage: 100 MG, 1X/DAY AT NIGHT
     Route: 048
  2. CIALIS [Concomitant]
     Active Substance: TADALAFIL
     Dosage: UNK, DAILY
  3. VIAGRA [Suspect]
     Active Substance: SILDENAFIL CITRATE
     Dosage: 100MG, UNK
     Route: 048
     Dates: start: 201412, end: 201412
  4. ALLOPURINOL. [Concomitant]
     Active Substance: ALLOPURINOL
     Indication: GOUT
     Dosage: 100 MG, 1X/DAY
  5. ALLOPURINOL. [Concomitant]
     Active Substance: ALLOPURINOL
     Indication: ARTHRITIS
  6. VIAGRA [Suspect]
     Active Substance: SILDENAFIL CITRATE
     Dosage: TWO 50MG TABLETS, UNK
     Route: 048
     Dates: start: 20150221, end: 20150221
  7. OMEPRAZOLE. [Concomitant]
     Active Substance: OMEPRAZOLE
     Indication: ANTACID THERAPY
     Dosage: 40 MG, 1X/DAY

REACTIONS (2)
  - Drug ineffective [Recovered/Resolved]
  - Drug effect decreased [Recovered/Resolved]

NARRATIVE: CASE EVENT DATE: 201412
